FAERS Safety Report 22084447 (Version 1)
Quarter: 2023Q1

REPORT INFORMATION
  Report Type: Spontaneous
  Country: DE (occurrence: DE)
  Receive Date: 20230310
  Receipt Date: 20230310
  Transmission Date: 20230418
  Serious: Yes (Other)
  Sender: FDA-Public Use
  Company Number: DE-TEVA-2023-DE-2862019

PATIENT
  Sex: Female

DRUGS (2)
  1. SULFAMETHOXAZOLE\TRIMETHOPRIM [Interacting]
     Active Substance: SULFAMETHOXAZOLE\TRIMETHOPRIM
     Indication: Product used for unknown indication
     Route: 048
  2. AMINOPHYLLINE\QUININE SULFATE [Interacting]
     Active Substance: AMINOPHYLLINE\QUININE SULFATE
     Indication: Muscle spasms
     Route: 065

REACTIONS (6)
  - Foreign body in throat [Unknown]
  - Constipation [Unknown]
  - Muscle spasms [Unknown]
  - Drug interaction [Unknown]
  - Product size issue [Unknown]
  - Product physical issue [Unknown]
